FAERS Safety Report 8094189 (Version 4)
Quarter: 2013Q3

REPORT INFORMATION
  Report Type: Spontaneous
  Country: US (occurrence: US)
  Receive Date: 20110817
  Receipt Date: 20130819
  Transmission Date: 20140515
  Serious: Yes (Hospitalization)
  Sender: FDA-Public Use
  Company Number: US-GLAXOSMITHKLINE-A0940364A

PATIENT
  Age: 20 Year
  Sex: Male
  Weight: 81.8 kg

DRUGS (5)
  1. LAMICTAL [Suspect]
     Indication: CONVULSION
     Dosage: 200MG TWICE PER DAY
     Route: 048
     Dates: start: 200608
  2. LAMOTRIGINE [Suspect]
     Indication: CONVULSION
     Dosage: 200MG TWICE PER DAY
     Route: 048
     Dates: start: 201011, end: 201012
  3. SYNTHROID [Concomitant]
  4. CORTEF [Concomitant]
  5. MAGNESIUM [Concomitant]

REACTIONS (3)
  - Convulsion [Recovered/Resolved]
  - Blood magnesium decreased [Recovered/Resolved]
  - Drug ineffective [Unknown]
